FAERS Safety Report 4422211-1 (Version None)
Quarter: 2004Q3

REPORT INFORMATION
  Report Type: 
  Country: None (occurrence: None)
  Receive Date: 20040806
  Receipt Date: 20040726
  Transmission Date: 20050211
  Serious: Yes (Life-Threatening, Hospitalization, Other)
  Sender: FDA-Public Use
  Company Number: 2004032716

PATIENT
  Age: 43 Year
  Sex: Male
  Weight: 90.7194 kg

DRUGS (1)
  1. VIAGRA [Suspect]
     Indication: ILL-DEFINED DISORDER

REACTIONS (5)
  - ACUTE MYOCARDIAL INFARCTION [None]
  - BUNDLE BRANCH BLOCK RIGHT [None]
  - MYOCARDIAL INFARCTION [None]
  - MYOGLOBIN BLOOD INCREASED [None]
  - VENTRICULAR FIBRILLATION [None]
